FAERS Safety Report 9266971 (Version 2)
Quarter: 2013Q2

REPORT INFORMATION
  Report Type: Spontaneous
  Country: US (occurrence: US)
  Receive Date: 20130502
  Receipt Date: 20130528
  Transmission Date: 20140414
  Serious: No
  Sender: FDA-Public Use
  Company Number: US-PFIZER INC-2013131484

PATIENT
  Age: 56 Year
  Sex: Male

DRUGS (6)
  1. CHANTIX [Suspect]
     Indication: SMOKING CESSATION THERAPY
     Dosage: UNK
  2. LITHIUM CARBONATE [Interacting]
     Dosage: UNK
  3. LAMICTAL [Interacting]
     Indication: BIPOLAR I DISORDER
     Dosage: UNK
  4. SEROQUEL [Interacting]
     Indication: BIPOLAR I DISORDER
     Dosage: UNK
  5. ABILIFY [Interacting]
     Indication: BIPOLAR I DISORDER
     Dosage: UNK
  6. PROZAC [Interacting]
     Indication: BIPOLAR I DISORDER
     Dosage: UNK

REACTIONS (3)
  - Drug interaction [Unknown]
  - Nightmare [Unknown]
  - Sleep disorder [Unknown]
